FAERS Safety Report 21996882 (Version 2)
Quarter: 2023Q1

REPORT INFORMATION
  Report Type: Spontaneous
  Country: US (occurrence: US)
  Receive Date: 20230215
  Receipt Date: 20230215
  Transmission Date: 20230418
  Serious: Yes (Other)
  Sender: FDA-Public Use
  Company Number: US-GILEAD-2023-0616915

PATIENT
  Age: 62 Year
  Sex: Male

DRUGS (1)
  1. BIKTARVY [Suspect]
     Active Substance: BICTEGRAVIR SODIUM\EMTRICITABINE\TENOFOVIR ALAFENAMIDE FUMARATE
     Indication: HIV infection
     Dosage: UNK, ^BEEN TAKING FOR A LONG TIME^
     Route: 065

REACTIONS (2)
  - Bipolar disorder [Not Recovered/Not Resolved]
  - Product label issue [Not Recovered/Not Resolved]
